FAERS Safety Report 5225510-9 (Version None)
Quarter: 2007Q1

REPORT INFORMATION
  Report Type: 
  Country: None (occurrence: None)
  Receive Date: 20061201
  Receipt Date: 20060824
  Transmission Date: 20070707
  Serious: No
  Sender: FDA-Public Use
  Company Number: US200608005770

PATIENT
  Age: 40 Year
  Sex: Female
  Weight: 63.5 kg

DRUGS (1)
  1. CYMBALTA [Suspect]
     Indication: DEPRESSION
     Dates: start: 20060101

REACTIONS (3)
  - BLOOD PRESSURE ABNORMAL [None]
  - OEDEMA [None]
  - WEIGHT INCREASED [None]
